FAERS Safety Report 6519193-5 (Version None)
Quarter: 2009Q4

REPORT INFORMATION
  Report Type: 
  Country: None (occurrence: None)
  Receive Date: 20091224
  Receipt Date: 20091224
  Transmission Date: 20100525
  Serious: Yes (Hospitalization)
  Sender: FDA-Public Use
  Company Number: None

PATIENT
  Sex: Female
  Weight: 87 kg

DRUGS (2)
  1. CARBOPLATIN [Suspect]
     Dosage: 656 MG
  2. PACLITAXEL [Suspect]
     Dosage: 332 MG

REACTIONS (3)
  - BLOOD PRESSURE INADEQUATELY CONTROLLED [None]
  - DEHYDRATION [None]
  - SMALL INTESTINAL OBSTRUCTION [None]
